FAERS Safety Report 17776946 (Version 6)
Quarter: 2021Q1

REPORT INFORMATION
  Report Type: Report from Study
  Country: US (occurrence: US)
  Receive Date: 20200513
  Receipt Date: 20210305
  Transmission Date: 20210419
  Serious: Yes (Hospitalization, Other)
  Sender: FDA-Public Use
  Company Number: US-ACADIA PHARMACEUTICALS INC.-ACA-2019-014198

PATIENT
  Age: 73 Year
  Sex: Female

DRUGS (5)
  1. NUPLAZID [Suspect]
     Active Substance: PIMAVANSERIN TARTRATE
     Indication: PSYCHOTIC DISORDER
     Dosage: (10MG TABLET + 34 MG CAPSULE=44 MG, QD)
     Route: 048
     Dates: start: 20200424
  2. NUPLAZID [Suspect]
     Active Substance: PIMAVANSERIN TARTRATE
     Dosage: (34 MG CAPSULE +10 MG TABLET= 44 MG, QD)
     Route: 048
     Dates: start: 20200424
  3. NUPLAZID [Suspect]
     Active Substance: PIMAVANSERIN TARTRATE
     Indication: PARKINSON^S DISEASE
     Dosage: (10MG TABLET + 34 MG CAPSULE=44 MG, QD)
     Route: 048
     Dates: start: 20190726
  4. NUPLAZID [Suspect]
     Active Substance: PIMAVANSERIN TARTRATE
     Indication: PARKINSON^S DISEASE
     Dosage: 34 MG, QD
     Route: 048
     Dates: start: 20190611
  5. NUPLAZID [Suspect]
     Active Substance: PIMAVANSERIN TARTRATE
     Indication: PSYCHOTIC DISORDER
     Dosage: (34 MG CAPSULE +10 MG TABLET= 44 MG, QD)
     Route: 048
     Dates: start: 20190726

REACTIONS (9)
  - Hip fracture [Recovered/Resolved]
  - Anger [Not Recovered/Not Resolved]
  - Hallucination [Not Recovered/Not Resolved]
  - Drug ineffective [Not Recovered/Not Resolved]
  - Hallucination [Not Recovered/Not Resolved]
  - Delusion [Not Recovered/Not Resolved]
  - Dementia with Lewy bodies [Not Recovered/Not Resolved]
  - Prescribed overdose [Unknown]
  - Fall [Unknown]

NARRATIVE: CASE EVENT DATE: 2019
